FAERS Safety Report 16601880 (Version 2)
Quarter: 2020Q4

REPORT INFORMATION
  Report Type: Spontaneous
  Country: US (occurrence: US)
  Receive Date: 20190719
  Receipt Date: 20201001
  Transmission Date: 20210113
  Serious: No
  Sender: FDA-Public Use
  Company Number: US-009507513-1907USA011441

PATIENT
  Age: 33 Year
  Sex: Female
  Weight: 117.01 kg

DRUGS (8)
  1. NEXPLANON [Suspect]
     Active Substance: ETONOGESTREL
     Dosage: 1 IMPLANT
     Route: 059
     Dates: start: 202003
  2. RITALIN [Concomitant]
     Active Substance: METHYLPHENIDATE HYDROCHLORIDE
  3. EPIPEN [Concomitant]
     Active Substance: EPINEPHRINE
     Dosage: AS NEEDED
  4. GILENYA [Concomitant]
     Active Substance: FINGOLIMOD HYDROCHLORIDE
     Dosage: UNK
  5. ERGOCALCIFEROL. [Concomitant]
     Active Substance: ERGOCALCIFEROL
     Dosage: 5000 UNIT ONCE A WEEK, QW
  6. NEXPLANON [Suspect]
     Active Substance: ETONOGESTREL
     Indication: CONTRACEPTION
     Dosage: 1 SINGLE IMPLANT IN LEFT INNER ARM, 3 YEARS
     Route: 059
     Dates: start: 20161107, end: 202003
  7. ALBUTEROL SULFATE. [Concomitant]
     Active Substance: ALBUTEROL SULFATE
     Dosage: UNK
  8. AMLODIPINE [Concomitant]
     Active Substance: AMLODIPINE BESYLATE
     Dosage: UNK

REACTIONS (6)
  - Incorrect product administration duration [Unknown]
  - Menorrhagia [Not Recovered/Not Resolved]
  - Blood pressure abnormal [Not Recovered/Not Resolved]
  - Dysmenorrhoea [Not Recovered/Not Resolved]
  - Glucose tolerance impaired [Not Recovered/Not Resolved]
  - Blood cholesterol increased [Not Recovered/Not Resolved]

NARRATIVE: CASE EVENT DATE: 201902
